FAERS Safety Report 23878533 (Version 2)
Quarter: 2024Q3

REPORT INFORMATION
  Report Type: Spontaneous
  Country: US (occurrence: US)
  Receive Date: 20240521
  Receipt Date: 20240822
  Transmission Date: 20241016
  Serious: No
  Sender: LEADING PHARMA
  Company Number: US-LEADINGPHARMA-US-2024LEASPO00147

PATIENT

DRUGS (1)
  1. HYDROCHLOROTHIAZIDE [Suspect]
     Active Substance: HYDROCHLOROTHIAZIDE
     Indication: Hypertension
     Route: 065

REACTIONS (4)
  - Hypertension [Unknown]
  - Condition aggravated [Unknown]
  - Drug ineffective [Unknown]
  - Product substitution issue [Unknown]
